FAERS Safety Report 9402731 (Version 2)
Quarter: 2013Q3

REPORT INFORMATION
  Report Type: Spontaneous
  Country: US (occurrence: None)
  Receive Date: 20130712
  Receipt Date: 20130809
  Transmission Date: 20140515
  Serious: Yes (Death)
  Sender: FDA-Public Use
  Company Number: ADR-2013-01144

PATIENT
  Age: 22 Year
  Sex: Male

DRUGS (9)
  1. COMPOUNDED BACLOFEN (INTRATHECAL) - 2000 MCG/ML [Suspect]
     Indication: MUSCLE SPASTICITY
  2. CARBAMAZEPINE [Concomitant]
  3. CLONAZEPAM [Concomitant]
  4. DIAZEPAM [Concomitant]
  5. EES [Concomitant]
  6. FLUOXETINE [Concomitant]
  7. LIDOCAINE TOPICAL [Concomitant]
  8. METHADONE [Concomitant]
  9. METHYLIN [Concomitant]

REACTIONS (6)
  - General physical health deterioration [None]
  - Pain [None]
  - Abdominal distension [None]
  - Flatulence [None]
  - Gastrointestinal disorder [None]
  - Somnolence [None]
